FAERS Safety Report 5025936-2 (Version None)
Quarter: 2006Q2

REPORT INFORMATION
  Report Type: 
  Country: None (occurrence: None)
  Receive Date: 20060614
  Receipt Date: 20060608
  Transmission Date: 20061013
  Serious: Yes (Other)
  Sender: FDA-Public Use
  Company Number: JP-JPN-A200601916

PATIENT
  Age: 75 Year
  Sex: Male

DRUGS (1)
  1. VALTREX [Suspect]
     Indication: HERPES ZOSTER
     Dosage: 1000MG THREE TIMES PER DAY
     Route: 048
     Dates: start: 20060531

REACTIONS (5)
  - DIFFICULTY IN WALKING [None]
  - DYSARTHRIA [None]
  - HALLUCINATION [None]
  - MUSCULAR WEAKNESS [None]
  - OVERDOSE [None]
